FAERS Safety Report 6558112-2 (Version None)
Quarter: 2010Q1

REPORT INFORMATION
  Report Type: 
  Country: None (occurrence: None)
  Receive Date: 20100129
  Receipt Date: 20100128
  Transmission Date: 20100710
  Serious: Yes (Death, Life-Threatening, Hospitalization)
  Sender: FDA-Public Use
  Company Number: A0841756A

PATIENT
  Sex: Female
  Weight: 32.5 kg

DRUGS (1)
  1. PAZOPANIB [Suspect]
     Dosage: 800MG PER DAY
     Route: 048
     Dates: start: 20090812, end: 20090907

REACTIONS (10)
  - COUGH [None]
  - DYSPHAGIA [None]
  - EATING DISORDER [None]
  - FATIGUE [None]
  - HAEMOPTYSIS [None]
  - HYPONATRAEMIA [None]
  - PNEUMONIA [None]
  - PYREXIA [None]
  - RESPIRATORY DISTRESS [None]
  - THROMBOCYTOPENIA [None]
